FAERS Safety Report 5604761-5 (Version None)
Quarter: 2008Q1

REPORT INFORMATION
  Report Type: 
  Country: None (occurrence: None)
  Receive Date: 20080128
  Receipt Date: 20080125
  Transmission Date: 20080703
  Serious: Yes (Death)
  Sender: FDA-Public Use
  Company Number: PHEH2007US13897

PATIENT
  Age: 55 Year
  Sex: Male
  Weight: 133.79 kg

DRUGS (1)
  1. EXJADE [Suspect]
     Indication: IRON METABOLISM DISORDER
     Dosage: 2000 MG, QD
     Route: 048
     Dates: start: 20070117

REACTIONS (3)
  - DEVICE RELATED INFECTION [None]
  - RESPIRATORY FAILURE [None]
  - SEPSIS [None]
